FAERS Safety Report 4947964-5 (Version None)
Quarter: 2006Q1

REPORT INFORMATION
  Report Type: 
  Country: None (occurrence: None)
  Receive Date: 20060320
  Receipt Date: 20051011
  Transmission Date: 20060701
  Serious: Yes (Hospitalization, Disabling)
  Sender: FDA-Public Use
  Company Number: US-MERCK-0510USA06885

PATIENT
  Age: 46 Year
  Sex: Female
  Weight: 59 kg

DRUGS (22)
  1. VIOXX [Suspect]
     Indication: TEMPOROMANDIBULAR JOINT SYNDROME
     Route: 048
     Dates: start: 20031023, end: 20040225
  2. VIOXX [Suspect]
     Route: 048
     Dates: start: 20010904, end: 20010920
  3. VIOXX [Suspect]
     Indication: PAIN
     Route: 048
     Dates: start: 20031023, end: 20040225
  4. VIOXX [Suspect]
     Route: 048
     Dates: start: 20010904, end: 20010920
  5. ZOMIG [Concomitant]
     Route: 065
  6. ATENOLOL [Concomitant]
     Route: 065
  7. DIAZEPAM [Concomitant]
     Route: 065
  8. TIZANIDINE HYDROCHLORIDE [Concomitant]
     Route: 065
  9. AMBIEN [Concomitant]
     Route: 065
  10. DIAMOX [Concomitant]
     Route: 065
  11. VICODIN [Concomitant]
     Route: 065
  12. TRAZODONE HYDROCHLORIDE [Concomitant]
     Route: 065
  13. TRIVORA-21 [Concomitant]
     Route: 065
  14. MIRTAZAPINE [Concomitant]
     Route: 065
  15. FROVA [Concomitant]
     Route: 065
  16. OXYCODONE [Concomitant]
     Route: 065
  17. PAMELOR [Concomitant]
     Route: 065
  18. PREDNISONE [Concomitant]
     Route: 065
  19. NEURONTIN [Concomitant]
     Route: 065
  20. SONATA [Concomitant]
     Route: 065
  21. VALIUM [Concomitant]
     Route: 065
  22. PERCOCET [Concomitant]
     Route: 065

REACTIONS (7)
  - HYPERTENSION [None]
  - ISCHAEMIC CEREBRAL INFARCTION [None]
  - MIGRAINE [None]
  - NAUSEA [None]
  - NECK PAIN [None]
  - PALPITATIONS [None]
  - SPINAL COLUMN STENOSIS [None]
